FAERS Safety Report 6713138-0 (Version None)
Quarter: 2010Q2

REPORT INFORMATION
  Report Type: 
  Country: None (occurrence: None)
  Receive Date: 20100505
  Receipt Date: 20100505
  Transmission Date: 20101027
  Serious: Yes (Other)
  Sender: FDA-Public Use
  Company Number: None

PATIENT
  Age: 3 Year
  Sex: Male
  Weight: 12.7007 kg

DRUGS (1)
  1. CHILDREN'S TYLENOL -VERY BERRY- 160 MG PER 5 ML MCNEIL CONSUMER HEALTH [Suspect]
     Indication: PYREXIA
     Dosage: 5 ML EVERY 4 HRS PO
     Route: 048
     Dates: start: 20100426, end: 20100427

REACTIONS (6)
  - DECREASED APPETITE [None]
  - FATIGUE [None]
  - FEELING ABNORMAL [None]
  - LETHARGY [None]
  - PRODUCT QUALITY ISSUE [None]
  - VOMITING [None]
